FAERS Safety Report 7669820-4 (Version None)
Quarter: 2011Q3

REPORT INFORMATION
  Report Type: 
  Country: None (occurrence: None)
  Receive Date: 20110808
  Receipt Date: 20110726
  Transmission Date: 20111222
  Serious: Yes (Life-Threatening, Hospitalization)
  Sender: FDA-Public Use
  Company Number: FR-NOVOPROD-332709

PATIENT

DRUGS (2)
  1. AMARYL [Concomitant]
  2. VICTOZA [Suspect]
     Indication: TYPE 2 DIABETES MELLITUS
     Dosage: 0.6 MG, QD
     Route: 058
     Dates: start: 20110406, end: 20110408

REACTIONS (6)
  - ABDOMINAL PAIN [None]
  - RENAL FAILURE ACUTE [None]
  - VOMITING [None]
  - NAUSEA [None]
  - DRUG INEFFECTIVE [None]
  - DIABETIC KETOACIDOSIS [None]
